FAERS Safety Report 13915783 (Version 2)
Quarter: 2017Q3

REPORT INFORMATION
  Report Type: Spontaneous
  Country: CN (occurrence: CN)
  Receive Date: 20170829
  Receipt Date: 20170919
  Transmission Date: 20171127
  Serious: Yes (Hospitalization)
  Sender: FDA-Public Use
  Company Number: CN-ASTRAZENECA-2017SE86742

PATIENT
  Age: 44 Year
  Sex: Female

DRUGS (6)
  1. VOGLIBOSE [Concomitant]
     Active Substance: VOGLIBOSE
  2. GLICLAZIDE [Concomitant]
     Active Substance: GLICLAZIDE
  3. REPAGLINIDE. [Concomitant]
     Active Substance: REPAGLINIDE
  4. LANTUS [Concomitant]
     Active Substance: INSULIN GLARGINE
  5. FORXIGA [Suspect]
     Active Substance: DAPAGLIFLOZIN
     Route: 048
     Dates: start: 20170118, end: 20170201
  6. SITAGLIPTIN [Concomitant]
     Active Substance: SITAGLIPTIN

REACTIONS (1)
  - Ketoacidosis [Unknown]
